FAERS Safety Report 20534029 (Version 1)
Quarter: 2022Q1

REPORT INFORMATION
  Report Type: Spontaneous
  Country: CA (occurrence: None)
  Receive Date: 20220301
  Receipt Date: 20220301
  Transmission Date: 20220424
  Serious: Yes (Life-Threatening)
  Sender: FDA-Public Use
  Company Number: CA-ROCHE-3037423

PATIENT
  Age: 33 Year
  Sex: Female

DRUGS (2)
  1. ENTRECTINIB [Suspect]
     Active Substance: ENTRECTINIB
     Indication: Lung adenocarcinoma
     Route: 065
     Dates: start: 20210913
  2. CARBOPLATIN;PEMETREXED [Concomitant]
     Dates: start: 20210505, end: 20210709

REACTIONS (1)
  - Metastases to central nervous system [Unknown]
